FAERS Safety Report 8866243 (Version 6)
Quarter: 2012Q4

REPORT INFORMATION
  Report Type: Report from Study
  Country: FR (occurrence: FR)
  Receive Date: 20121025
  Receipt Date: 20121207
  Transmission Date: 20130627
  Serious: Yes (Hospitalization, Other)
  Sender: FDA-Public Use
  Company Number: FR-ROCHE-1146306

PATIENT
  Age: 41 Year
  Sex: Female
  Weight: 49 kg

DRUGS (11)
  1. PERTUZUMAB [Suspect]
     Indication: BREAST CANCER
     Dosage: date of last dose prior to SAE- 03/Oct/2012
     Route: 042
     Dates: start: 20121003
  2. TRASTUZUMAB [Suspect]
     Indication: BREAST CANCER
     Dosage: loading dose
     Route: 042
     Dates: start: 20121003
  3. TRASTUZUMAB [Suspect]
     Dosage: date of last dose prior to SAE- 03/Oct/2012, dose: 384 mg
     Route: 042
  4. DOCETAXEL [Suspect]
     Indication: BREAST CANCER
     Dosage: date of last dose prior to SAE- 04/Oct/2012
     Route: 042
     Dates: start: 20121004
  5. BICARBONATE [Concomitant]
     Route: 065
     Dates: start: 20121009
  6. FLUCONAZOLE [Concomitant]
     Indication: APHTHOUS STOMATITIS
     Dosage: 500mg in 700 mg
     Route: 065
     Dates: start: 20121009
  7. ERYTHROMYCIN [Concomitant]
     Dosage: 2 flasks
     Route: 065
     Dates: start: 20121009
  8. DESLORATADINE [Concomitant]
     Indication: PRURITUS
     Dosage: 15 tablets
     Route: 065
     Dates: start: 20121009
  9. GLYCO-THYMOLINE [Concomitant]
     Dosage: mouthwash
     Route: 065
     Dates: start: 20121026, end: 20121104
  10. DEXERYL (FRANCE) [Concomitant]
     Route: 065
     Dates: start: 20121027
  11. GRANOCYTE 34 [Concomitant]
     Route: 065
     Dates: start: 20121029, end: 20121102

REACTIONS (2)
  - Febrile bone marrow aplasia [Recovered/Resolved with Sequelae]
  - Neutrophil count [Recovered/Resolved]
